FAERS Safety Report 6600921-5 (Version None)
Quarter: 2010Q1

REPORT INFORMATION
  Report Type: 
  Country: None (occurrence: None)
  Receive Date: 20100225
  Receipt Date: 20100216
  Transmission Date: 20100710
  Serious: Yes (Death)
  Sender: FDA-Public Use
  Company Number: GB-BRACCO-000131

PATIENT
  Sex: Female
  Weight: 63 kg

DRUGS (8)
  1. NIOPAM [Suspect]
     Indication: COMPUTERISED TOMOGRAM
     Route: 042
     Dates: start: 20080922, end: 20080922
  2. NIOPAM [Suspect]
     Indication: TONGUE NEOPLASM MALIGNANT STAGE UNSPECIFIED
     Route: 042
     Dates: start: 20080922, end: 20080922
  3. GLICLAZIDE [Concomitant]
     Route: 065
  4. METFORMIN HCL [Concomitant]
     Route: 065
  5. ASPIRIN [Concomitant]
     Dosage: DISPERSIBLE
     Route: 065
  6. RAMIPRIL [Concomitant]
     Route: 065
  7. CLOMIPRAMINE HCL [Concomitant]
     Route: 065
  8. FUROSEMIDE [Concomitant]
     Route: 065

REACTIONS (7)
  - ARTERIOSCLEROSIS CORONARY ARTERY [None]
  - CARDIAC ARREST [None]
  - HEPATIC CONGESTION [None]
  - IDIOSYNCRATIC DRUG REACTION [None]
  - PULMONARY CONGESTION [None]
  - RESPIRATORY ARREST [None]
  - TONGUE NEOPLASM MALIGNANT STAGE UNSPECIFIED [None]
